FAERS Safety Report 9660103 (Version 1)
Quarter: 2013Q4

REPORT INFORMATION
  Report Type: Spontaneous
  Country: CN (occurrence: CN)
  Receive Date: 20131031
  Receipt Date: 20131031
  Transmission Date: 20140711
  Serious: Yes (Hospitalization)
  Sender: FDA-Public Use
  Company Number: CN-BAYER-2013-132834

PATIENT
  Age: 61 Year
  Sex: Female
  Weight: 58 kg

DRUGS (1)
  1. IOPROMIDE [Suspect]
     Indication: DIAGNOSTIC PROCEDURE
     Dosage: 100 ML, QD
     Route: 042
     Dates: start: 20120204, end: 20120214

REACTIONS (2)
  - Hypovolaemic shock [Recovering/Resolving]
  - Rash [Recovering/Resolving]
